FAERS Safety Report 20160237 (Version 1)
Quarter: 2021Q4

REPORT INFORMATION
  Report Type: Spontaneous
  Country: DK (occurrence: DK)
  Receive Date: 20211208
  Receipt Date: 20211208
  Transmission Date: 20220304
  Serious: Yes (Other)
  Sender: FDA-Public Use
  Company Number: DK-BAYER-2021A259954

PATIENT
  Age: 61 Year
  Sex: Male

DRUGS (5)
  1. SORAFENIB [Suspect]
     Active Substance: SORAFENIB
     Indication: Gastrointestinal stromal tumour
     Dosage: 400 MG, BID
     Route: 048
     Dates: start: 200808
  2. SORAFENIB [Suspect]
     Active Substance: SORAFENIB
     Indication: Gastrointestinal stromal tumour
     Dosage: 200 MG, TID
     Route: 048
     Dates: start: 200809
  3. SORAFENIB [Suspect]
     Active Substance: SORAFENIB
     Indication: Gastrointestinal stromal tumour
     Dosage: 200 MG, BID
     Route: 048
     Dates: start: 200909
  4. SORAFENIB [Suspect]
     Active Substance: SORAFENIB
     Indication: Gastrointestinal stromal tumour
     Dosage: 200 MG, QD
     Route: 048
     Dates: start: 201305
  5. SORAFENIB [Suspect]
     Active Substance: SORAFENIB
     Indication: Gastrointestinal stromal tumour
     Dosage: 400 MG, QD
     Route: 048
     Dates: start: 201710

REACTIONS (11)
  - Gastrointestinal stromal tumour [None]
  - Gastrointestinal stromal tumour [None]
  - Acute myocardial infarction [None]
  - Acute myocardial infarction [None]
  - Chronic kidney disease [None]
  - Proteinuria [None]
  - Toxicity to various agents [None]
  - Diarrhoea [None]
  - Hypertension [None]
  - Drug effective for unapproved indication [None]
  - Off label use [None]

NARRATIVE: CASE EVENT DATE: 20080801
